FAERS Safety Report 6255978-0 (Version None)
Quarter: 2009Q3

REPORT INFORMATION
  Report Type: 
  Country: None (occurrence: None)
  Receive Date: 20090706
  Receipt Date: 20090629
  Transmission Date: 20100115
  Serious: Yes (Hospitalization)
  Sender: FDA-Public Use
  Company Number: JP-BRISTOL-MYERS SQUIBB COMPANY-14688436

PATIENT
  Age: 43 Year
  Sex: Male

DRUGS (4)
  1. REYATAZ [Suspect]
     Indication: HIV INFECTION
     Dosage: FROM 20APR04-14JUN04-400MG FROM 15JUN04-04JUN08-300MG
     Route: 048
     Dates: start: 20040420, end: 20080604
  2. EPIVIR [Suspect]
     Indication: HIV INFECTION
     Dosage: FRM 20APR04-04JUN08,13JUN08-ONG.
     Route: 048
     Dates: start: 20040420
  3. NORVIR [Suspect]
     Indication: HIV INFECTION
     Dosage: FRM 15JUN04-04JUN08,13JUN08-ONG.
     Route: 048
     Dates: start: 20040615
  4. ABACAVIR SULFATE [Concomitant]
     Dosage: FRM 20APR04-04JUN08,13JUN08-ONG.FORM-TAB
     Route: 048
     Dates: start: 20040420

REACTIONS (2)
  - CALCULUS URINARY [None]
  - RENAL FAILURE ACUTE [None]
